FAERS Safety Report 7581176-4 (Version None)
Quarter: 2011Q2

REPORT INFORMATION
  Report Type: 
  Country: None (occurrence: None)
  Receive Date: 20110629
  Receipt Date: 20110620
  Transmission Date: 20111010
  Serious: Yes (Hospitalization)
  Sender: FDA-Public Use
  Company Number: JP-ASTRAZENECA-2011SE38363

PATIENT
  Sex: Male

DRUGS (3)
  1. BETAMETHASONE [Concomitant]
     Route: 048
     Dates: start: 20110604, end: 20110604
  2. SYMBICORT [Suspect]
     Dosage: 30, 5 DF AT ONCE
     Route: 055
     Dates: start: 20110604, end: 20110604
  3. SYMBICORT [Suspect]
     Dosage: 30, UNKNOWN DOSE WITH UNKNOWN FREQUENCY
     Route: 055
     Dates: start: 20110604, end: 20110604

REACTIONS (1)
  - CONVULSION [None]
